FAERS Safety Report 14549418 (Version 1)
Quarter: 2018Q1

REPORT INFORMATION
  Report Type: Other
  Country: ES (occurrence: ES)
  Receive Date: 20180219
  Receipt Date: 20180219
  Transmission Date: 20180509
  Serious: Yes (Life-Threatening, Hospitalization)
  Sender: FDA-Public Use
  Company Number: ES-GLENMARK PHARMACEUTICALS-2018GMK032219

PATIENT

DRUGS (6)
  1. TRANXILIUM [Interacting]
     Active Substance: CLORAZEPATE DIPOTASSIUM
     Indication: SUICIDE ATTEMPT
     Dosage: UNK, 2 BLISTER
     Route: 048
     Dates: start: 20170507, end: 20170507
  2. BRINTELLIX [Concomitant]
     Active Substance: VORTIOXETINE HYDROBROMIDE
     Indication: PRODUCT USED FOR UNKNOWN INDICATION
     Dosage: UNK, 1-0-0
     Route: 048
     Dates: start: 20160312, end: 20170507
  3. OMEPRAZOLE. [Suspect]
     Active Substance: OMEPRAZOLE
     Indication: SUICIDE ATTEMPT
     Dosage: 20 CPS
     Route: 048
     Dates: start: 20170507, end: 20170507
  4. TOPAMAX [Interacting]
     Active Substance: TOPIRAMATE
     Indication: SUICIDE ATTEMPT
     Dosage: UNK, 6 BLISTER
     Route: 048
     Dates: start: 20170507, end: 20170507
  5. LYRICA [Interacting]
     Active Substance: PREGABALIN
     Indication: SUICIDE ATTEMPT
     Dosage: UNK, 5 BLISTERS
     Route: 048
     Dates: start: 20170507, end: 20170507
  6. QUETIAPINA [Concomitant]
     Active Substance: QUETIAPINE
     Indication: PRODUCT USED FOR UNKNOWN INDICATION
     Dosage: UNK, 0-0-1
     Route: 048
     Dates: end: 20170507

REACTIONS (4)
  - Metabolic acidosis [Recovered/Resolved]
  - Respiratory failure [Recovered/Resolved with Sequelae]
  - Somnolence [Recovered/Resolved]
  - Pancreatitis [Recovered/Resolved]

NARRATIVE: CASE EVENT DATE: 20170507
